FAERS Safety Report 5201388-4 (Version None)
Quarter: 2007Q1

REPORT INFORMATION
  Report Type: 
  Country: None (occurrence: None)
  Receive Date: 20070104
  Receipt Date: 20061220
  Transmission Date: 20070707
  Serious: Yes (Hospitalization)
  Sender: FDA-Public Use
  Company Number: 2006BI016441

PATIENT
  Age: 56 Year
  Sex: Male

DRUGS (15)
  1. AVONEX [Suspect]
     Indication: MULTIPLE SCLEROSIS
     Dosage: 30 UG; QW; IM
     Route: 030
     Dates: start: 20040101
  2. ARICEPT [Concomitant]
  3. PRAVACHOL [Concomitant]
  4. FOSAMAX [Concomitant]
  5. NAMENDA [Concomitant]
  6. ASPIRIN [Concomitant]
  7. WELLBUTRIN SR [Concomitant]
  8. CALCIUM WITH VITAMIN D [Concomitant]
  9. FOLIC ACID [Concomitant]
  10. METHOTREXATE [Concomitant]
  11. AMANTADINE HCL [Concomitant]
  12. RESTASIS [Concomitant]
  13. CELLUVISC [Concomitant]
  14. ENABLEX EXTENDED RELEASE [Concomitant]
  15. UROXATRAL EXTENDED RELEASE [Concomitant]

REACTIONS (3)
  - CONFUSIONAL STATE [None]
  - DEHYDRATION [None]
  - FALL [None]
